FAERS Safety Report 19057277 (Version 2)
Quarter: 2021Q1

REPORT INFORMATION
  Report Type: Spontaneous
  Country: US (occurrence: US)
  Receive Date: 20210324
  Receipt Date: 20210324
  Transmission Date: 20210420
  Serious: No
  Sender: FDA-Public Use
  Company Number: US-BIOCRYST-2021BCR00053

PATIENT
  Age: 69 Year
  Sex: Female
  Weight: 62.6 kg

DRUGS (5)
  1. ORLADEYO [Suspect]
     Active Substance: BEROTRALSTAT HYDROCHLORIDE
     Indication: HEREDITARY ANGIOEDEMA
     Dosage: 150 MG, 1X/DAY
     Route: 048
     Dates: start: 20210225
  2. ATENOLOL. [Concomitant]
     Active Substance: ATENOLOL
     Dosage: 25 MG, 1X/DAY
     Route: 048
  3. ICATIBANT [Concomitant]
     Active Substance: ICATIBANT ACETATE
     Dosage: 30 MG, AS NEEDED
     Route: 058
  4. ALBUTEROL. [Concomitant]
     Active Substance: ALBUTEROL
     Dosage: UNK, AS NEEDED
  5. SIMETHICONE (DIMETHICONE) [Concomitant]
     Active Substance: DIMETHICONE
     Dosage: 125 MG, AS NEEDED
     Route: 048

REACTIONS (4)
  - Swelling face [Recovered/Resolved]
  - Periorbital swelling [Recovered/Resolved]
  - Rash pruritic [Recovered/Resolved]
  - Rash erythematous [Recovered/Resolved]

NARRATIVE: CASE EVENT DATE: 20210225
